FAERS Safety Report 11127249 (Version 1)
Quarter: 2015Q2

REPORT INFORMATION
  Report Type: Spontaneous
  Country: US (occurrence: US)
  Receive Date: 20150521
  Receipt Date: 20150521
  Transmission Date: 20150821
  Serious: Yes (Other)
  Sender: FDA-Public Use
  Company Number: CA-JNJCP-30000279396

PATIENT
  Sex: Female
  Weight: 58 kg

DRUGS (1)
  1. NEUTROGENA ADVANCED SOLUTIONS MICRODERMABRASION SYSTEM [Suspect]
     Active Substance: COSMETICS
     Indication: REMOVAL OF INERT MATTER FROM SKIN OR SUBCUTANEOUS TISSUE
     Dosage: TWO PADS TWO TIMES
     Route: 061

REACTIONS (1)
  - Squamous cell carcinoma [Recovered/Resolved]
